FAERS Safety Report 7587615-7 (Version None)
Quarter: 2011Q3

REPORT INFORMATION
  Report Type: 
  Country: None (occurrence: None)
  Receive Date: 20110704
  Receipt Date: 20110622
  Transmission Date: 20111222
  Serious: Yes (Other)
  Sender: FDA-Public Use
  Company Number: PHHY2011AU55437

PATIENT
  Sex: Male

DRUGS (1)
  1. EXJADE [Suspect]
     Indication: IRON OVERLOAD
     Dosage: 750 MG, UNK
     Route: 048
     Dates: start: 20110428

REACTIONS (2)
  - MEMORY IMPAIRMENT [None]
  - BLOOD PRESSURE SYSTOLIC DECREASED [None]
